FAERS Safety Report 8170540-0 (Version None)
Quarter: 2012Q1

REPORT INFORMATION
  Report Type: 
  Country: None (occurrence: None)
  Receive Date: 20120106
  Receipt Date: 20110418
  Transmission Date: 20120608
  Serious: Yes (Hospitalization)
  Sender: FDA-Public Use
  Company Number: US-006131

PATIENT
  Age: 44 Year
  Sex: Male
  Weight: 68.1 kg

DRUGS (11)
  1. FOSAMAX [Concomitant]
  2. SPIRIVA [Concomitant]
  3. ALBUTEROL [Concomitant]
  4. MULTIHANCE [Suspect]
     Indication: RENAL MASS
     Dosage: 14ML ONCE INTRAVENOUS (NOT OTHERWISE SPECIFIED)
     Route: 042
     Dates: start: 20110317, end: 20110317
  5. MULTIHANCE [Suspect]
     Indication: NUCLEAR MAGNETIC RESONANCE IMAGING
     Dosage: 14ML ONCE INTRAVENOUS (NOT OTHERWISE SPECIFIED)
     Route: 042
     Dates: start: 20110317, end: 20110317
  6. MULTIHANCE [Suspect]
     Indication: ABDOMINAL PAIN
     Dosage: 14ML ONCE INTRAVENOUS (NOT OTHERWISE SPECIFIED)
     Route: 042
     Dates: start: 20110317, end: 20110317
  7. MULTIHANCE [Suspect]
     Indication: ULTRASOUND SCAN
     Dosage: 14ML ONCE INTRAVENOUS (NOT OTHERWISE SPECIFIED)
     Route: 042
     Dates: start: 20110317, end: 20110317
  8. ALBUTEROL [Concomitant]
  9. ALBUTEROL [Suspect]
  10. PREDNISONE TAB [Concomitant]
  11. NEXIUM [Concomitant]

REACTIONS (1)
  - ANAPHYLACTIC REACTION [None]
